FAERS Safety Report 5825802-6 (Version None)
Quarter: 2008Q3

REPORT INFORMATION
  Report Type: 
  Country: None (occurrence: None)
  Receive Date: 20080729
  Receipt Date: 20080722
  Transmission Date: 20090109
  Serious: Yes (Hospitalization)
  Sender: FDA-Public Use
  Company Number: AUWYE004603JAN07

PATIENT
  Sex: Female

DRUGS (3)
  1. EFFEXOR [Suspect]
     Indication: DEPRESSION
     Dosage: 150 MG, FREQUENCY UNKNOWN
     Route: 048
     Dates: start: 20031201
  2. EFFEXOR [Suspect]
     Indication: ECONOMIC PROBLEM
     Dosage: 75 MG, FREQUENCY UNKNOWN
     Route: 048
     Dates: end: 20061201
  3. EFFEXOR [Suspect]
     Indication: SOCIAL PROBLEM

REACTIONS (24)
  - AGITATION [None]
  - AMENORRHOEA [None]
  - ANXIETY [None]
  - BLOOD PROLACTIN INCREASED [None]
  - CONFUSIONAL STATE [None]
  - CONSTIPATION [None]
  - DIARRHOEA [None]
  - DIZZINESS [None]
  - DRUG WITHDRAWAL SYNDROME [None]
  - DYSMENORRHOEA [None]
  - EXCESSIVE MASTURBATION [None]
  - HEADACHE [None]
  - HYPERHIDROSIS [None]
  - INSOMNIA [None]
  - MENSTRUATION IRREGULAR [None]
  - NAUSEA [None]
  - NERVOUSNESS [None]
  - NIGHTMARE [None]
  - PARAESTHESIA [None]
  - POLYCYSTIC OVARIES [None]
  - SLEEP DISORDER [None]
  - VISION BLURRED [None]
  - VOMITING [None]
  - WEIGHT INCREASED [None]
